FAERS Safety Report 9699131 (Version 1)
Quarter: 2013Q4

REPORT INFORMATION
  Report Type: Spontaneous
  Country: IT (occurrence: IT)
  Receive Date: 20131120
  Receipt Date: 20131120
  Transmission Date: 20140711
  Serious: Yes (Other)
  Sender: FDA-Public Use
  Company Number: IT-TEVA-443864ISR

PATIENT
  Age: 74 Year
  Sex: Female
  Weight: 90 kg

DRUGS (4)
  1. OXALIPLATINO TEVA [Suspect]
     Indication: COLON CANCER
     Dosage: 181 MILLIGRAM DAILY; CONCENTRATE FOR SOLUTION FOR INFUSION. DAILY DOSE: 181 MG
     Dates: start: 20130709, end: 20131029
  2. CALCIO FOLINATO [Concomitant]
     Dosage: 362 MILLIGRAM DAILY;
     Route: 042
     Dates: start: 20130709, end: 20131029
  3. FLUOROURACILE [Concomitant]
     Dosage: 724 MILLIGRAM DAILY;
     Dates: start: 20130709, end: 20131029
  4. ONDASETRON CLORIDRATO DIIDRATO [Concomitant]
     Dosage: 8 MILLIGRAM DAILY;
     Dates: start: 20130709, end: 20131029

REACTIONS (1)
  - Laryngospasm [Recovered/Resolved]
